FAERS Safety Report 7344708-7 (Version None)
Quarter: 2011Q1

REPORT INFORMATION
  Report Type: 
  Country: None (occurrence: None)
  Receive Date: 20110310
  Receipt Date: 20110225
  Transmission Date: 20110831
  Serious: Yes (Other)
  Sender: FDA-Public Use
  Company Number: PHFR2011GB00800

PATIENT
  Sex: Female
  Weight: 75 kg

DRUGS (5)
  1. CLOZARIL [Suspect]
     Indication: SCHIZOPHRENIA
     Dosage: UNK
     Route: 048
     Dates: start: 20061123
  2. HYOSCINE HBR HYT [Concomitant]
     Indication: DRY MOUTH
     Dosage: 300 MCG
     Route: 048
     Dates: start: 20070101, end: 20110128
  3. CLOZARIL [Suspect]
     Dosage: 400 MG
     Route: 048
     Dates: start: 20070101, end: 20110119
  4. LITHIUM CARBONATE [Concomitant]
     Indication: SCHIZOPHRENIA
     Dosage: 800 MG
     Route: 048
     Dates: start: 20070101
  5. VALPROATE SODIUM [Concomitant]
     Indication: SCHIZOPHRENIA
     Dosage: 900 MG
     Route: 048
     Dates: start: 20070101

REACTIONS (9)
  - INFLUENZA [None]
  - NEUTROPENIA [None]
  - URINARY TRACT INFECTION [None]
  - NEUTROPHIL COUNT DECREASED [None]
  - WHITE BLOOD CELL COUNT INCREASED [None]
  - NEUTROPHIL COUNT INCREASED [None]
  - PLATELET COUNT DECREASED [None]
  - WHITE BLOOD CELL COUNT DECREASED [None]
  - THROMBOCYTOPENIA [None]
